FAERS Safety Report 5811080-0 (Version None)
Quarter: 2008Q3

REPORT INFORMATION
  Report Type: 
  Country: None (occurrence: None)
  Receive Date: 20080716
  Receipt Date: 20080709
  Transmission Date: 20090109
  Serious: Yes (Hospitalization, Other)
  Sender: FDA-Public Use
  Company Number: US-AMGEN-US155679

PATIENT
  Sex: Male
  Weight: 50.4 kg

DRUGS (16)
  1. EPOGEN [Suspect]
     Indication: DIALYSIS
     Route: 058
     Dates: start: 20030324, end: 20051101
  2. ARANESP [Suspect]
     Indication: DIALYSIS
     Route: 058
     Dates: start: 20050511, end: 20050511
  3. AMIODARONE HCL [Concomitant]
     Route: 048
     Dates: start: 20051231
  4. SENSIPAR [Concomitant]
     Indication: HYPERPARATHYROIDISM SECONDARY
     Dates: start: 20050401
  5. IRBESARTAN [Concomitant]
     Route: 048
     Dates: start: 20060222
  6. METOPROLOL [Concomitant]
     Route: 048
  7. PANTOPRAZOLE SODIUM [Concomitant]
  8. QUINAPRIL [Concomitant]
  9. FOSRENOL [Concomitant]
     Dates: start: 20050819
  10. MINOXIDIL [Concomitant]
  11. RENAGEL [Concomitant]
     Dates: start: 20060105
  12. IMDUR [Concomitant]
     Route: 048
     Dates: start: 20060209
  13. ZEMPLAR [Concomitant]
     Route: 042
  14. LISINOPRIL [Concomitant]
     Route: 048
     Dates: start: 20071218
  15. NEPHROCAPS [Concomitant]
     Dates: start: 20061107
  16. FISH OIL [Concomitant]
     Route: 048
     Dates: start: 20070822

REACTIONS (9)
  - ANAEMIA [None]
  - ANTI-ERYTHROPOIETIN ANTIBODY POSITIVE [None]
  - APLASIA PURE RED CELL [None]
  - AZOTAEMIA [None]
  - BRADYCARDIA [None]
  - HYPERKALAEMIA [None]
  - NON-NEUTRALISING ANTIBODIES POSITIVE [None]
  - PERICARDIAL EFFUSION [None]
  - THROMBOCYTOPENIA [None]
